FAERS Safety Report 5468503-9 (Version None)
Quarter: 2007Q3

REPORT INFORMATION
  Report Type: 
  Country: None (occurrence: None)
  Receive Date: 20070926
  Receipt Date: 20070720
  Transmission Date: 20080115
  Serious: No
  Sender: FDA-Public Use
  Company Number: US-BRISTOL-MYERS SQUIBB COMPANY-13852991

PATIENT
  Sex: Female
  Weight: 102 kg

DRUGS (1)
  1. ORENCIA [Suspect]
     Indication: RHEUMATOID ARTHRITIS
     Route: 042
     Dates: start: 20070703

REACTIONS (4)
  - ARTHRALGIA [None]
  - FACE OEDEMA [None]
  - HEADACHE [None]
  - OEDEMA PERIPHERAL [None]
